FAERS Safety Report 9828475 (Version 1)
Quarter: 2013Q4

REPORT INFORMATION
  Report Type: Spontaneous
  Country: US (occurrence: None)
  Receive Date: 20131120
  Receipt Date: 20131120
  Transmission Date: 20140711
  Serious: No
  Sender: FDA-Public Use
  Company Number: 1000049740

PATIENT
  Age: 53 Year
  Sex: Female

DRUGS (7)
  1. VIIBRYD [Suspect]
     Indication: DEPRESSION
     Dosage: 10 MG (10 MG, 1 IN 1 D), ORAL
     Route: 048
     Dates: start: 20130926, end: 20131002
  2. CYMBALTA (DULOXETINE HYDROCHLORIDE) [Suspect]
     Indication: DEPRESSION
     Dosage: 90 MG (90 MG, 1 IN 1 D)
     Dates: start: 2011, end: 2013
  3. CYMBALTA (DULOXETINE HYDROCHLORIDE) [Suspect]
     Indication: DEPRESSION
     Dosage: 30 MG (30 MG, 1 IN 1 D)
     Dates: start: 2013, end: 20130927
  4. OXYCODONE (OXYCODONE) (OXYCODONE) [Concomitant]
  5. MIRTAZAPINE (MIRTAZAPINE) (MIRTAZAPINE) [Concomitant]
  6. XANAX (ALPRAZOLAM (ALPRAZOLAM) [Concomitant]
  7. DEPLIN (CALCIUM LEVOMEFOLATE) (CALCIUM LEVOMEFOLATE) [Concomitant]

REACTIONS (5)
  - Dizziness [None]
  - Malaise [None]
  - Paraesthesia [None]
  - Depressed mood [None]
  - Depression [None]
